FAERS Safety Report 9034506 (Version 1)
Quarter: 2013Q1

REPORT INFORMATION
  Report Type: Spontaneous
  Country: FR (occurrence: FR)
  Receive Date: 20130129
  Receipt Date: 20130129
  Transmission Date: 20140127
  Serious: Yes (Other)
  Sender: FDA-Public Use
  Company Number: FR-AMGEN-FRASP2013005913

PATIENT
  Age: 29 Year
  Sex: Male

DRUGS (5)
  1. ENBREL [Suspect]
     Indication: PRODUCT USED FOR UNKNOWN INDICATION
     Dosage: 25 MG, 2X/WEEK
     Route: 058
     Dates: start: 200408
  2. ENBREL [Suspect]
     Dosage: 25 MG, WEEKLY
     Route: 058
     Dates: end: 200709
  3. ENBREL [Suspect]
     Dosage: UNK
     Dates: start: 2007
  4. FELDENE [Concomitant]
     Indication: SPONDYLITIS
     Dosage: 20 MG, AS NEEDED
     Route: 048
     Dates: start: 200403, end: 200408
  5. FELDENE [Concomitant]
     Dosage: UNK
     Dates: start: 200709

REACTIONS (5)
  - Infertility male [Not Recovered/Not Resolved]
  - Sperm analysis abnormal [Not Recovered/Not Resolved]
  - Asthenospermia [Not Recovered/Not Resolved]
  - Azoospermia [Not Recovered/Not Resolved]
  - Condition aggravated [Unknown]
